FAERS Safety Report 9373657 (Version 1)
Quarter: 2013Q2

REPORT INFORMATION
  Report Type: Spontaneous
  Country: US (occurrence: US)
  Receive Date: 20130627
  Receipt Date: 20130627
  Transmission Date: 20140414
  Serious: Yes (Hospitalization)
  Sender: FDA-Public Use
  Company Number: US-TEVA-415361USA

PATIENT
  Age: 6 Month
  Sex: Female

DRUGS (1)
  1. AMOXICILLIN [Suspect]
     Dosage: 5ML
     Route: 048

REACTIONS (2)
  - Chromaturia [Recovered/Resolved]
  - Overdose [Recovered/Resolved]
